FAERS Safety Report 14963613 (Version 1)
Quarter: 2018Q2

REPORT INFORMATION
  Report Type: Spontaneous
  Country: RU (occurrence: RU)
  Receive Date: 20180601
  Receipt Date: 20180601
  Transmission Date: 20180711
  Serious: Yes (Hospitalization, Other)
  Sender: FDA-Public Use
  Company Number: RU-SHIRE-RU201820426

PATIENT

DRUGS (3)
  1. PEGASPARGASE [Suspect]
     Active Substance: PEGASPARGASE
     Dosage: 2675 IU, UNK
     Route: 042
     Dates: end: 20171003
  2. PEGASPARGASE [Suspect]
     Active Substance: PEGASPARGASE
     Indication: ACUTE LYMPHOCYTIC LEUKAEMIA
     Dosage: 60 MG, UNK
     Route: 042
  3. PEGASPARGASE [Suspect]
     Active Substance: PEGASPARGASE
     Dosage: 1080 MG, UNK
     Route: 042

REACTIONS (4)
  - Hypoalbuminaemia [Unknown]
  - Pyrexia [Unknown]
  - Bone marrow failure [Unknown]
  - Antithrombin III deficiency [Unknown]

NARRATIVE: CASE EVENT DATE: 20171001
